FAERS Safety Report 18659510 (Version 1)
Quarter: 2020Q4

REPORT INFORMATION
  Report Type: Spontaneous
  Country: US (occurrence: US)
  Receive Date: 20201223
  Receipt Date: 20201223
  Transmission Date: 20210114
  Serious: Yes (Life-Threatening, Other)
  Sender: FDA-Public Use
  Company Number: US-AMAG PHARMACEUTICALS, INC.-AMAG202004327

PATIENT
  Sex: Female

DRUGS (1)
  1. FERAHEME [Suspect]
     Active Substance: FERUMOXYTOL NON-STOICHIOMETRIC MAGNETITE
     Indication: SCAN WITH CONTRAST
     Dosage: A PARTIAL DOSE (APPROX 1/3 OF THE DOSAGE BASED ON MY WEIGHT, WHICH I WAS TOLD WAS 4MG PER KG)
     Route: 042
     Dates: start: 20201214

REACTIONS (7)
  - Dyspnoea [Unknown]
  - Anaphylactic reaction [Unknown]
  - Flushing [Unknown]
  - Off label use [Unknown]
  - Swelling face [Unknown]
  - Throat tightness [Unknown]
  - Chills [Unknown]

NARRATIVE: CASE EVENT DATE: 20201214
